FAERS Safety Report 21475198 (Version 1)
Quarter: 2022Q4

REPORT INFORMATION
  Report Type: Report from Study
  Country: US (occurrence: US)
  Receive Date: 20221019
  Receipt Date: 20221019
  Transmission Date: 20230113
  Serious: No
  Sender: FDA-Public Use
  Company Number: US-ABBVIE-4156226

PATIENT
  Sex: Female

DRUGS (1)
  1. SKYRIZI [Suspect]
     Active Substance: RISANKIZUMAB-RZAA
     Indication: Psoriasis
     Dosage: DOSAGE: 150 UG/MG WEEK 0, AFTER THAT WEEK 4 AND THEN EVERY 12 WEEK? FORM STRENGTH: 150 MILLIGRAM
     Route: 058
     Dates: start: 20220910

REACTIONS (2)
  - Feeling of body temperature change [Unknown]
  - Adverse drug reaction [Unknown]

NARRATIVE: CASE EVENT DATE: 20220101
